FAERS Safety Report 6716231-1 (Version None)
Quarter: 2010Q2

REPORT INFORMATION
  Report Type: 
  Country: None (occurrence: None)
  Receive Date: 20100507
  Receipt Date: 20100428
  Transmission Date: 20101027
  Serious: Yes (Hospitalization)
  Sender: FDA-Public Use
  Company Number: US-ABBOTT-09P-163-0601693-04

PATIENT
  Sex: Female

DRUGS (30)
  1. HUMIRA [Suspect]
     Indication: CROHN'S DISEASE
     Route: 058
     Dates: start: 20080401, end: 20090915
  2. HUMIRA [Suspect]
     Route: 058
     Dates: start: 20091001, end: 20091001
  3. HUMIRA [Suspect]
  4. REMERON [Concomitant]
     Indication: POST-TRAUMATIC STRESS DISORDER
     Dates: start: 20070601
  5. REMERON [Concomitant]
     Indication: GASTROINTESTINAL PAIN
  6. ATIVAN [Concomitant]
     Indication: POST-TRAUMATIC STRESS DISORDER
     Dates: start: 20040601
  7. TYLENOL-500 [Concomitant]
     Indication: ARTHRALGIA
     Dates: start: 20030901
  8. PREDNISONE [Concomitant]
     Indication: CROHN'S DISEASE
     Dosage: 30MG TAPERED TO 15MG
     Dates: start: 20080401, end: 20080501
  9. PREDNISONE [Concomitant]
     Dates: start: 20081101, end: 20090101
  10. PREDNISONE [Concomitant]
     Route: 048
     Dates: start: 20090501, end: 20090801
  11. DONNATAL [Concomitant]
     Indication: ABDOMINAL PAIN
     Dates: start: 20081101, end: 20081201
  12. DESIPRAMINE HCL [Concomitant]
     Indication: DEPRESSION
     Dates: start: 20090101, end: 20090201
  13. CIPROFLOXACIN [Concomitant]
     Indication: INFECTION PROPHYLAXIS
     Dates: start: 20081101, end: 20081201
  14. SUBOXONE [Concomitant]
     Indication: ABDOMINAL PAIN
     Dosage: 2-0.5MG
     Dates: start: 20090601
  15. FENTANYL [Concomitant]
     Indication: ABDOMINAL PAIN
     Dates: start: 20081201, end: 20090501
  16. OMEPRAZOLE [Concomitant]
     Indication: GASTRITIS PROPHYLAXIS
     Dates: start: 20090319
  17. COUMADIN [Concomitant]
     Indication: DEEP VEIN THROMBOSIS
     Dates: start: 20081201, end: 20090601
  18. DILAUDID [Concomitant]
     Indication: ABDOMINAL PAIN
     Dates: start: 20081201, end: 20090501
  19. VITAMIN D [Concomitant]
     Indication: VITAMIN D DEFICIENCY
     Dates: start: 20081101
  20. ROWASA [Concomitant]
     Indication: CROHN'S DISEASE
     Dates: start: 20081101, end: 20090501
  21. LIDOCAINE [Concomitant]
     Indication: ABDOMINAL PAIN
     Route: 062
     Dates: start: 20081101
  22. MIRALAX [Concomitant]
     Indication: CONSTIPATION
     Dates: start: 20081101
  23. GABAPENTIN [Concomitant]
     Indication: ABDOMINAL PAIN
     Dates: start: 20090401, end: 20090601
  24. COLACE [Concomitant]
     Indication: CONSTIPATION
     Dates: start: 20081101
  25. CYMBALTA [Concomitant]
     Indication: DEPRESSION
     Dates: start: 20081101, end: 20081201
  26. CEPHALEXIN [Concomitant]
     Indication: SKIN INFECTION
     Dates: start: 20090904
  27. CLONIDINE [Concomitant]
     Indication: DRUG WITHDRAWAL SYNDROME
     Dates: start: 20090529, end: 20090530
  28. XANAX [Concomitant]
     Indication: ANXIETY
     Dates: start: 20040601
  29. VENTOLIN [Concomitant]
     Indication: ASTHMA
  30. CYCLOBENZAPRINE [Concomitant]
     Indication: PAIN
     Route: 048
     Dates: start: 20081001

REACTIONS (3)
  - ABDOMINAL PAIN [None]
  - CELLULITIS [None]
  - HIDRADENITIS [None]
